FAERS Safety Report 17915289 (Version 1)
Quarter: 2020Q2

REPORT INFORMATION
  Report Type: Spontaneous
  Country: CN (occurrence: CN)
  Receive Date: 20200619
  Receipt Date: 20200619
  Transmission Date: 20200714
  Serious: Yes (Life-Threatening, Hospitalization)
  Sender: FDA-Public Use
  Company Number: CN-CHEPLA-C20201812

PATIENT
  Age: 56 Year
  Sex: Male

DRUGS (8)
  1. TEICOPLANIN [Suspect]
     Active Substance: TEICOPLANIN
     Indication: INFECTION
  2. PREDNISONE. [Suspect]
     Active Substance: PREDNISONE
     Indication: RASH
     Dosage: 20 MG DAILY
     Route: 048
  3. SULPERAZONE [Suspect]
     Active Substance: CEFOPERAZONE SODIUM\SULBACTAM SODIUM
     Indication: INFECTION
  4. VORICONAZOLE. [Suspect]
     Active Substance: VORICONAZOLE
     Indication: INFECTION
  5. CALAMINE [Concomitant]
     Active Substance: CALAMINE\FERRIC OXIDE RED\ZINC OXIDE
     Indication: INFECTION
  6. TIGECYCLINE. [Suspect]
     Active Substance: TIGECYCLINE
     Indication: BACTERIAL INFECTION
     Dosage: 50 MG EVERY 12 HOURS BY INTREVENOUS DRIP
     Route: 041
  7. LORATADINE. [Suspect]
     Active Substance: LORATADINE
     Indication: RASH
  8. GANCICLOVIR. [Suspect]
     Active Substance: GANCICLOVIR
     Indication: INFECTION

REACTIONS (7)
  - Drug hypersensitivity [Unknown]
  - Pyrexia [Unknown]
  - Skin discolouration [Unknown]
  - Erythema [Recovering/Resolving]
  - Toxic epidermal necrolysis [Recovering/Resolving]
  - Cough [Unknown]
  - Productive cough [Unknown]
